FAERS Safety Report 7272811-9 (Version None)
Quarter: 2011Q1

REPORT INFORMATION
  Report Type: 
  Country: None (occurrence: None)
  Receive Date: 20110128
  Receipt Date: 20110114
  Transmission Date: 20110831
  Serious: Yes (Death)
  Sender: FDA-Public Use
  Company Number: 1000018416

PATIENT
  Age: 67 Year
  Sex: Male

DRUGS (5)
  1. ETHANOL (ETHANOL) [Suspect]
  2. CYCLOBENZAPRINE [Suspect]
  3. PRAMIPEXOLE DIHYCHLLORIDE [Suspect]
  4. LORCET-HD [Suspect]
  5. CITALOPRAM HYDROBROMIDE [Suspect]

REACTIONS (1)
  - DEATH [None]
